FAERS Safety Report 5383247-X (Version None)
Quarter: 2007Q3

REPORT INFORMATION
  Report Type: 
  Country: None (occurrence: None)
  Receive Date: 20070710
  Receipt Date: 20070226
  Transmission Date: 20080115
  Serious: No
  Sender: FDA-Public Use
  Company Number: US-PFIZER INC-2006152448

PATIENT

DRUGS (1)
  1. EXUBERA [Suspect]

REACTIONS (1)
  - NO ADVERSE REACTION [None]
